FAERS Safety Report 15926817 (Version 5)
Quarter: 2021Q2

REPORT INFORMATION
  Report Type: Spontaneous
  Country: GR (occurrence: GR)
  Receive Date: 20190206
  Receipt Date: 20210628
  Transmission Date: 20210716
  Serious: Yes (Other)
  Sender: FDA-Public Use
  Company Number: PHHY2019GR025738

PATIENT
  Age: 31 Year
  Sex: Male

DRUGS (7)
  1. OXALIPLATIN. [Suspect]
     Active Substance: OXALIPLATIN
     Indication: TESTICULAR GERM CELL CANCER
     Dosage: UNK
     Route: 065
  2. TAXOL [Suspect]
     Active Substance: PACLITAXEL
     Indication: ADJUVANT THERAPY
  3. IRINOTECAN [Suspect]
     Active Substance: IRINOTECAN
     Indication: ADJUVANT THERAPY
  4. OXALIPLATIN. [Suspect]
     Active Substance: OXALIPLATIN
     Indication: ADJUVANT THERAPY
  5. IRINOTECAN [Suspect]
     Active Substance: IRINOTECAN
     Indication: TESTICULAR GERM CELL CANCER
     Dosage: UNK
     Route: 065
  6. TAXOL [Suspect]
     Active Substance: PACLITAXEL
     Indication: TESTICULAR GERM CELL CANCER
     Dosage: UNK
     Route: 065
  7. GEMCITABINE HYDROCHLORIDE. [Suspect]
     Active Substance: GEMCITABINE HYDROCHLORIDE
     Indication: ADJUVANT THERAPY
     Dosage: UNK, CYCLIC (UNK, QCY)
     Route: 065

REACTIONS (2)
  - Malignant neoplasm progression [Unknown]
  - Teratoma benign [Unknown]
